FAERS Safety Report 8726084 (Version 3)
Quarter: 2012Q4

REPORT INFORMATION
  Report Type: 
  Country: US (occurrence: US)
  Receive Date: 20120816
  Receipt Date: 20120914
  Transmission Date: 20130627
  Serious: Yes (Other)
  Sender: FDA-Public Use
  Company Number: US-SANOFI-AVENTIS-2012SA057143

PATIENT
  Age: 79 Year
  Sex: Female
  Weight: 85 kg

DRUGS (7)
  1. LANTUS [Suspect]
     Indication: TYPE 2 DIABETES MELLITUS
     Dosage: Dose:26 unit(s)
     Route: 058
     Dates: start: 2010
  2. SOLOSTAR [Suspect]
     Indication: TYPE 2 DIABETES MELLITUS
     Dates: start: 2010
  3. CRESTOR /UNK/ [Concomitant]
     Indication: CHOLESTEROL
     Dates: start: 2009
  4. LEVOTHYROXINE [Concomitant]
     Indication: THYROID DISORDER
     Dates: start: 2010
  5. HYDROCHLOROTHIAZIDE [Concomitant]
     Indication: WATER RETENTION
     Dates: start: 2010
  6. AMLODIPINE [Concomitant]
     Indication: BLOOD PRESSURE HIGH
     Dates: start: 2010
  7. ASPIRIN [Concomitant]

REACTIONS (3)
  - Lung neoplasm malignant [Unknown]
  - Blood glucose increased [Unknown]
  - Device malfunction [None]
